FAERS Safety Report 9454820 (Version 1)
Quarter: 2013Q3

REPORT INFORMATION
  Report Type: Spontaneous
  Country: US (occurrence: US)
  Receive Date: 20130812
  Receipt Date: 20130812
  Transmission Date: 20140515
  Serious: No
  Sender: FDA-Public Use
  Company Number: US-B.I. PHARMACEUTICALS,INC./RIDGEFIELD-2013-BI-23774BP

PATIENT
  Age: 80 Year
  Sex: Female
  Weight: 50 kg

DRUGS (5)
  1. PRADAXA [Suspect]
     Indication: ATRIAL FIBRILLATION
     Dosage: 300 MG
     Route: 048
     Dates: start: 201307, end: 201307
  2. WATER PILL [Concomitant]
     Indication: FLUID RETENTION
  3. LOSARTAN [Concomitant]
     Indication: HYPERTENSION
  4. POTASSIUM [Concomitant]
  5. BETAPACE [Concomitant]
     Indication: CARDIAC DISORDER
     Dosage: 160 MG
     Route: 048

REACTIONS (6)
  - Oesophageal pain [Recovered/Resolved]
  - Chest pain [Recovered/Resolved]
  - Blood pressure increased [Recovered/Resolved]
  - Heart rate increased [Recovered/Resolved]
  - Malaise [Recovered/Resolved]
  - Abdominal pain upper [Recovered/Resolved]
